FAERS Safety Report 15758892 (Version 2)
Quarter: 2018Q4

REPORT INFORMATION
  Report Type: Report from Study
  Country: None (occurrence: US)
  Receive Date: 20181225
  Receipt Date: 20181226
  Transmission Date: 20190205
  Serious: Yes (Other)
  Sender: FDA-Public Use
  Company Number: US-ABBVIE-18K-163-2597470-00

PATIENT
  Age: 44 Year
  Sex: Male

DRUGS (1)
  1. HUMIRA [Suspect]
     Active Substance: ADALIMUMAB
     Indication: PRODUCT USED FOR UNKNOWN INDICATION
     Route: 058

REACTIONS (5)
  - Uveitis [Unknown]
  - Impaired work ability [Unknown]
  - Retinal vasculitis [Unknown]
  - Behcet^s syndrome [Unknown]
  - Blindness [Unknown]

NARRATIVE: CASE EVENT DATE: 201806
